FAERS Safety Report 8116367-7 (Version None)
Quarter: 2012Q1

REPORT INFORMATION
  Report Type: 
  Country: None (occurrence: None)
  Receive Date: 20120206
  Receipt Date: 20120131
  Transmission Date: 20120608
  Serious: Yes (Death)
  Sender: FDA-Public Use
  Company Number: AT-GLAXOSMITHKLINE-B0767787A

PATIENT
  Sex: Male

DRUGS (1)
  1. VOTRIENT [Suspect]
     Indication: BLADDER CANCER
     Route: 065

REACTIONS (4)
  - LUNG DISORDER [None]
  - DEATH [None]
  - METASTASES TO LUNG [None]
  - OFF LABEL USE [None]
